FAERS Safety Report 4958111-8 (Version None)
Quarter: 2006Q1

REPORT INFORMATION
  Report Type: 
  Country: None (occurrence: None)
  Receive Date: 20060330
  Receipt Date: 20060223
  Transmission Date: 20060701
  Serious: Yes (Death, Other)
  Sender: FDA-Public Use
  Company Number: ES-AMGEN-UK170169

PATIENT
  Sex: Male

DRUGS (1)
  1. DARBEPOETIN ALFA [Suspect]
     Indication: DIALYSIS
     Route: 042
     Dates: start: 20050929, end: 20060216

REACTIONS (4)
  - ANAEMIA [None]
  - CHEST PAIN [None]
  - ISCHAEMIC CARDIOMYOPATHY [None]
  - SUDDEN DEATH [None]
